FAERS Safety Report 8621888-4 (Version None)
Quarter: 2012Q3

REPORT INFORMATION
  Report Type: 
  Country: None (occurrence: None)
  Receive Date: 20120822
  Receipt Date: 20120822
  Transmission Date: 20120928
  Serious: No
  Sender: FDA-Public Use
  Company Number: None

PATIENT
  Age: 65 Year
  Sex: Male

DRUGS (2)
  1. RIBAVIRIN [Suspect]
     Dosage: 1000 MG DAILY PO
     Route: 048
     Dates: start: 20120522, end: 20120817
  2. PEGASYS [Suspect]
     Dosage: 180 MCG EVERY WEEK SUBQ
     Route: 058
     Dates: start: 20120522, end: 20120817

REACTIONS (1)
  - RASH GENERALISED [None]
